FAERS Safety Report 8887499 (Version 1)
Quarter: 2012Q4

REPORT INFORMATION
  Report Type: Spontaneous
  Country: US (occurrence: None)
  Receive Date: 20121101
  Receipt Date: 20121101
  Transmission Date: 20130627
  Serious: Yes (Death, Hospitalization)
  Sender: FDA-Public Use
  Company Number: None

PATIENT
  Age: 84 Year
  Sex: Female
  Weight: 63.3 kg

DRUGS (4)
  1. WARFARIN [Suspect]
     Indication: ATRIAL FIBRILLATION
     Dosage: 5MG / 7.5MG  TWTHFSS/ MONDAYS PO
CHRONIC
     Route: 048
  2. AUGMENTIN [Suspect]
     Indication: BRONCHITIS
     Dosage: 500MG/125MG BID PO
RECENT
     Route: 048
  3. LOTREL [Concomitant]
  4. DIGOXIN [Concomitant]

REACTIONS (13)
  - Respiratory failure [None]
  - Atrial fibrillation [None]
  - Hypercoagulation [None]
  - International normalised ratio increased [None]
  - Systemic inflammatory response syndrome [None]
  - Pericardial haemorrhage [None]
  - Cardiac tamponade [None]
  - Multi-organ failure [None]
  - Right atrial dilatation [None]
  - Dilatation ventricular [None]
  - Tricuspid valve incompetence [None]
  - Intestinal ischaemia [None]
  - Terminal state [None]
